FAERS Safety Report 16369187 (Version 2)
Quarter: 2019Q2

REPORT INFORMATION
  Report Type: Spontaneous
  Country: US (occurrence: US)
  Receive Date: 20190529
  Receipt Date: 20190603
  Transmission Date: 20190711
  Serious: No
  Sender: FDA-Public Use
  Company Number: US-JNJFOC-20190519659

PATIENT
  Age: 33 Year
  Sex: Male
  Weight: 81.65 kg

DRUGS (2)
  1. MENS ROGAINE EXTRA STRENGTH UNSCENTED [Suspect]
     Active Substance: MINOXIDIL
     Route: 061
  2. MENS ROGAINE EXTRA STRENGTH UNSCENTED [Suspect]
     Active Substance: MINOXIDIL
     Indication: ALOPECIA
     Dosage: SUGGESTED DOSE
     Route: 061
     Dates: start: 20190512

REACTIONS (1)
  - Application site paraesthesia [Not Recovered/Not Resolved]

NARRATIVE: CASE EVENT DATE: 20190512
